FAERS Safety Report 5326048-0 (Version None)
Quarter: 2007Q2

REPORT INFORMATION
  Report Type: 
  Country: None (occurrence: None)
  Receive Date: 20070516
  Receipt Date: 20070510
  Transmission Date: 20071010
  Serious: Yes (Death)
  Sender: FDA-Public Use
  Company Number: KR-JNJFOC-20070201637

PATIENT
  Sex: Male
  Weight: 55 kg

DRUGS (7)
  1. SPORANOX [Suspect]
     Route: 042
  2. SPORANOX [Suspect]
     Indication: FEBRILE NEUTROPENIA
     Route: 042
  3. TEICOPLANIN [Concomitant]
     Indication: SEPSIS
     Route: 042
  4. CEFTAZIDIME [Concomitant]
     Indication: SEPSIS
     Route: 042
  5. AMIKACIN [Concomitant]
     Indication: SEPSIS
     Route: 042
  6. IMMUNE GLOBULIN INTRAVENOUS (HUMAN) [Concomitant]
     Indication: SEPSIS
     Route: 042
  7. IMIPENEM [Concomitant]
     Indication: SEPSIS
     Route: 042

REACTIONS (2)
  - DYSPNOEA [None]
  - SEPTIC SHOCK [None]
